FAERS Safety Report 23835836 (Version 1)
Quarter: 2024Q2

REPORT INFORMATION
  Report Type: Spontaneous
  Country: US (occurrence: US)
  Receive Date: 20240509
  Receipt Date: 20240509
  Transmission Date: 20240716
  Serious: Yes (Life-Threatening, Hospitalization, Other)
  Sender: FDA-Public Use
  Company Number: US-Accord-413104

PATIENT
  Age: 76 Year
  Sex: Female
  Weight: 49.9 kg

DRUGS (9)
  1. CARBOPLATIN [Suspect]
     Active Substance: CARBOPLATIN
     Indication: Small cell lung cancer
     Dosage: Q3W
     Route: 042
     Dates: start: 20240212
  2. ETOPOSIDE [Suspect]
     Active Substance: ETOPOSIDE
     Indication: Small cell lung cancer
     Dosage: Q3W, DAY 1 O DAY 3 OF EACH CYCLE
     Route: 042
     Dates: start: 20240212
  3. CHONDROITIN SULFATE (BOVINE)\GLUCOSAMINE [Concomitant]
     Active Substance: CHONDROITIN SULFATE (BOVINE)\GLUCOSAMINE SULFATE
     Indication: Arthritis
     Dosage: 4 TIMES A DAY (QID)
     Route: 048
     Dates: start: 1998
  4. B12 [Concomitant]
     Indication: Vitamin B12 decreased
     Dosage: QID
     Route: 048
     Dates: start: 20240131
  5. VITAMIN D3 [Concomitant]
     Active Substance: CHOLECALCIFEROL
     Dosage: QID
     Route: 048
     Dates: start: 2012
  6. FLAXSEED [Concomitant]
     Active Substance: FLAX SEED
     Dosage: QID
     Route: 048
     Dates: start: 2012
  7. MAGNESIUM [Concomitant]
     Active Substance: MAGNESIUM
     Dosage: QID
     Route: 048
     Dates: start: 20220802
  8. ZINC GLUCONATE [Concomitant]
     Active Substance: ZINC GLUCONATE
     Dosage: QID
     Route: 048
     Dates: start: 20231002
  9. ONDANSETRON [Concomitant]
     Active Substance: ONDANSETRON
     Indication: Nausea
     Dosage: TWICE A DAY
     Route: 048
     Dates: start: 20240131

REACTIONS (2)
  - Febrile neutropenia [Not Recovered/Not Resolved]
  - White blood cell count decreased [Unknown]

NARRATIVE: CASE EVENT DATE: 20240227
